FAERS Safety Report 12093007 (Version 2)
Quarter: 2016Q1

REPORT INFORMATION
  Report Type: Spontaneous
  Country: US (occurrence: US)
  Receive Date: 20160219
  Receipt Date: 20160222
  Transmission Date: 20160526
  Serious: No
  Sender: FDA-Public Use
  Company Number: US-PFIZER INC-2016085681

PATIENT
  Age: 60 Year
  Sex: Male

DRUGS (1)
  1. SUTENT [Suspect]
     Active Substance: SUNITINIB MALATE
     Indication: METASTATIC NEOPLASM
     Dosage: 50 MG, CYCLIC (DAILY FOR 4 WEEKS, THEN OFF 2 WEEKS)
     Route: 048
     Dates: start: 20150806

REACTIONS (2)
  - Throat lesion [Unknown]
  - Pharyngeal mass [Unknown]

NARRATIVE: CASE EVENT DATE: 20160210
